FAERS Safety Report 11181972 (Version 4)
Quarter: 2018Q2

REPORT INFORMATION
  Report Type: Spontaneous
  Country: US (occurrence: US)
  Receive Date: 20150611
  Receipt Date: 20180608
  Transmission Date: 20180711
  Serious: Yes (Other)
  Sender: FDA-Public Use
  Company Number: US-ASTELLAS-2015US015675

PATIENT
  Age: 90 Year
  Sex: Male

DRUGS (3)
  1. XTANDI [Suspect]
     Active Substance: ENZALUTAMIDE
     Route: 048
  2. XTANDI [Suspect]
     Active Substance: ENZALUTAMIDE
     Indication: HORMONE-REFRACTORY PROSTATE CANCER
     Dosage: 160 MG,(4 ? 40 MG CAPSULES) ONCE DAILY
     Route: 048
     Dates: start: 20150215
  3. XTANDI [Suspect]
     Active Substance: ENZALUTAMIDE
     Route: 065

REACTIONS (12)
  - Dizziness [Unknown]
  - Asthenia [Unknown]
  - Ear pain [Unknown]
  - Sinus disorder [Unknown]
  - Peripheral swelling [Unknown]
  - Diarrhoea [Unknown]
  - Insomnia [Unknown]
  - Accident [Recovered/Resolved]
  - Upper limb fracture [Recovering/Resolving]
  - Gait disturbance [Unknown]
  - Blood pressure fluctuation [Unknown]
  - Gait disturbance [Unknown]

NARRATIVE: CASE EVENT DATE: 20150501
